FAERS Safety Report 13748837 (Version 1)
Quarter: 2017Q3

REPORT INFORMATION
  Report Type: Spontaneous
  Country: US (occurrence: US)
  Receive Date: 20170713
  Receipt Date: 20170713
  Transmission Date: 20171127
  Serious: Yes (Other)
  Sender: FDA-Public Use
  Company Number: US-TEVA-781153ACC

PATIENT
  Sex: Male

DRUGS (2)
  1. PREDNISONE. [Suspect]
     Active Substance: PREDNISONE
     Indication: NASAL CONGESTION
     Route: 065
  2. PREDNISONE. [Suspect]
     Active Substance: PREDNISONE
     Indication: COUGH

REACTIONS (6)
  - Cough [Unknown]
  - Chronic obstructive pulmonary disease [Unknown]
  - Respiratory tract infection fungal [Unknown]
  - Dyspnoea [Unknown]
  - Nasal congestion [Unknown]
  - Sinusitis [Unknown]
